FAERS Safety Report 8546361-3 (Version None)
Quarter: 2012Q3

REPORT INFORMATION
  Report Type: 
  Country: None (occurrence: None)
  Receive Date: 20120727
  Receipt Date: 20111220
  Transmission Date: 20120928
  Serious: No
  Sender: FDA-Public Use
  Company Number: US-ASTRAZENECA-2011SE77191

PATIENT
  Age: 55 Year
  Sex: Male
  Weight: 79.4 kg

DRUGS (2)
  1. SEROQUEL [Suspect]
     Indication: BIPOLAR DISORDER
     Dosage: 100MG, BID AND 400MG, HS
     Route: 048
     Dates: start: 20080101
  2. OTHER MEDICATIONS [Concomitant]

REACTIONS (2)
  - DRUG DOSE OMISSION [None]
  - DRUG WITHDRAWAL SYNDROME [None]
